FAERS Safety Report 23185879 (Version 1)
Quarter: 2023Q4

REPORT INFORMATION
  Report Type: Spontaneous
  Country: US (occurrence: US)
  Receive Date: 20231115
  Receipt Date: 20231115
  Transmission Date: 20240109
  Serious: No
  Sender: FDA-Public Use
  Company Number: US-OTSUKA-2023_008339

PATIENT
  Sex: Male
  Weight: 63.5 kg

DRUGS (2)
  1. NUEDEXTA [Suspect]
     Active Substance: DEXTROMETHORPHAN HYDROBROMIDE\QUINIDINE SULFATE
     Indication: Crying
     Dosage: 1 DF (20/10 MG), QD
     Route: 065
  2. RIVASTIGMINE [Concomitant]
     Active Substance: RIVASTIGMINE
     Indication: Memory impairment
     Dosage: UNK
     Route: 065

REACTIONS (3)
  - Malaise [Unknown]
  - Therapy interrupted [Unknown]
  - Product use in unapproved indication [Unknown]
